FAERS Safety Report 18733316 (Version 2)
Quarter: 2021Q1

REPORT INFORMATION
  Report Type: Report from Study
  Country: US (occurrence: US)
  Receive Date: 20210112
  Receipt Date: 20210313
  Transmission Date: 20210419
  Serious: Yes (Other)
  Sender: FDA-Public Use
  Company Number: US-JNJFOC-20210110733

PATIENT

DRUGS (2)
  1. STELARA [Suspect]
     Active Substance: USTEKINUMAB
     Indication: CROHN^S DISEASE
     Route: 058
  2. STELARA [Suspect]
     Active Substance: USTEKINUMAB

REACTIONS (6)
  - Headache [Unknown]
  - Crohn^s disease [Recovering/Resolving]
  - Drug ineffective [Unknown]
  - Arthralgia [Unknown]
  - Insomnia [Unknown]
  - Parathyroid tumour [Unknown]

NARRATIVE: CASE EVENT DATE: 20210106
